FAERS Safety Report 7991079-9 (Version None)
Quarter: 2011Q4

REPORT INFORMATION
  Report Type: 
  Country: None (occurrence: None)
  Receive Date: 20111219
  Receipt Date: 20111214
  Transmission Date: 20120403
  Serious: Yes (Hospitalization)
  Sender: FDA-Public Use
  Company Number: CA-ROCHE-791740

PATIENT
  Sex: Male

DRUGS (9)
  1. CRESTOR [Concomitant]
  2. METHOTREXATE [Concomitant]
  3. VITAMIN D [Concomitant]
  4. TRAMADOL HCL [Concomitant]
     Dosage: AS NEEDED
  5. ACTEMRA [Suspect]
     Indication: RHEUMATOID ARTHRITIS
     Dosage: THERAPY INTERRUPTED DUE TO AE
     Route: 042
  6. ACTEMRA [Suspect]
     Route: 042
  7. ASPIRIN [Concomitant]
  8. PREDNISONE TAB [Concomitant]
  9. FOLIC ACID [Concomitant]

REACTIONS (1)
  - SCIATICA [None]
